FAERS Safety Report 6944576-9 (Version None)
Quarter: 2010Q3

REPORT INFORMATION
  Report Type: 
  Country: None (occurrence: None)
  Receive Date: 20100827
  Receipt Date: 20100817
  Transmission Date: 20110219
  Serious: Yes (Other)
  Sender: FDA-Public Use
  Company Number: US-PFIZER INC-2010073047

PATIENT
  Sex: Female
  Weight: 91.17 kg

DRUGS (4)
  1. LYRICA [Suspect]
     Indication: FIBROMYALGIA
     Dosage: 400 MG, 2X/DAY
     Route: 048
     Dates: start: 20100520, end: 20100618
  2. BENICAR [Concomitant]
     Indication: HYPERTENSION
     Dosage: UNK
  3. LIPITOR [Concomitant]
     Dosage: UNK
  4. VITAMIN D [Concomitant]
     Dosage: 100000 UNITS, UNK

REACTIONS (8)
  - DECREASED APPETITE [None]
  - DIZZINESS [None]
  - FEELING ABNORMAL [None]
  - HYPOTONIA [None]
  - POOR QUALITY SLEEP [None]
  - SEXUAL DYSFUNCTION [None]
  - SOMNOLENCE [None]
  - WEIGHT INCREASED [None]
